FAERS Safety Report 14210615 (Version 1)
Quarter: 2017Q4

REPORT INFORMATION
  Report Type: Spontaneous
  Country: US (occurrence: US)
  Receive Date: 20171121
  Receipt Date: 20171121
  Transmission Date: 20180321
  Serious: Yes (Hospitalization, Other)
  Sender: FDA-Public Use
  Company Number: US-GLAXOSMITHKLINE-US2017GSK178232

PATIENT
  Age: 32 Year
  Sex: Female

DRUGS (2)
  1. AMLODIPINE [Suspect]
     Active Substance: AMLODIPINE BESYLATE
     Dosage: 30 UNK, UNK
  2. CARVEDILOL. [Suspect]
     Active Substance: CARVEDILOL
     Dosage: 130 UNK, UNK

REACTIONS (7)
  - Acute respiratory distress syndrome [Unknown]
  - Intentional overdose [Unknown]
  - Depressed level of consciousness [Recovered/Resolved]
  - Pancreatitis [Unknown]
  - Hyperlipidaemia [Unknown]
  - Hypotension [Unknown]
  - Unresponsive to stimuli [Unknown]
